FAERS Safety Report 10095727 (Version 2)
Quarter: 2014Q2

REPORT INFORMATION
  Report Type: Spontaneous
  Country: JP (occurrence: JP)
  Receive Date: 20140422
  Receipt Date: 20140422
  Transmission Date: 20141212
  Serious: Yes (Death, Hospitalization)
  Sender: FDA-Public Use
  Company Number: JP-AMGEN-JPNSP2014021416

PATIENT
  Age: 80 Year
  Sex: Male
  Weight: 50 kg

DRUGS (7)
  1. PRALIA [Suspect]
     Indication: OSTEOPOROSIS
     Dosage: 60 MG, UNK
     Route: 058
     Dates: start: 20140305, end: 20140305
  2. KIDMIN                             /01983701/ [Concomitant]
     Indication: OSTEOPOROSIS
     Dosage: 200 ML, BID
     Route: 042
     Dates: start: 20131231
  3. ELEMENMIC [Concomitant]
     Indication: PARENTERAL NUTRITION
     Dosage: 1, QD
     Route: 042
     Dates: start: 20131231
  4. VITAJECT                           /00176001/ [Concomitant]
     Indication: PARENTERAL NUTRITION
     Dosage: 1, QD
     Route: 042
     Dates: start: 20131231
  5. HUMULIN R [Concomitant]
     Indication: DIABETES MELLITUS
     Dosage: 10, QD
     Route: 042
     Dates: start: 20131231
  6. SODIUM PHOSPHATE [Concomitant]
     Indication: HYPOPHOSPHATAEMIA
     Dosage: 1, QD
     Route: 042
     Dates: start: 20131231
  7. ZOMETA [Concomitant]
     Indication: HYPERCALCAEMIA
     Dosage: 2 MG, QD
     Route: 042
     Dates: start: 20140101, end: 20140101

REACTIONS (3)
  - Hepatic failure [Fatal]
  - Renal failure [Fatal]
  - Hypocalcaemia [Recovering/Resolving]
